FAERS Safety Report 7380691-6 (Version None)
Quarter: 2011Q1

REPORT INFORMATION
  Report Type: 
  Country: None (occurrence: None)
  Receive Date: 20110329
  Receipt Date: 20110329
  Transmission Date: 20110831
  Serious: Yes (Other)
  Sender: FDA-Public Use
  Company Number: TW-JNJFOC-20110308035

PATIENT
  Sex: Male
  Weight: 65 kg

DRUGS (2)
  1. ULTRACET [Suspect]
     Route: 048
  2. ULTRACET [Suspect]
     Indication: ANALGESIC THERAPY
     Route: 048

REACTIONS (5)
  - ABDOMINAL PAIN UPPER [None]
  - DIARRHOEA [None]
  - MUSCULAR WEAKNESS [None]
  - DIZZINESS [None]
  - DYSURIA [None]
